FAERS Safety Report 6913153-8 (Version None)
Quarter: 2010Q3

REPORT INFORMATION
  Report Type: 
  Country: None (occurrence: None)
  Receive Date: 20100806
  Receipt Date: 20090902
  Transmission Date: 20110219
  Serious: No
  Sender: FDA-Public Use
  Company Number: US-PFIZER INC-2009236288

PATIENT
  Sex: Male

DRUGS (8)
  1. DETROL LA [Suspect]
     Indication: NEUROGENIC BLADDER
     Dosage: 4 MG, 2X/DAY
     Dates: start: 20071104
  2. DETROL [Suspect]
     Indication: NEUROGENIC BLADDER
     Dosage: 2 MG, 3X/DAY
     Dates: start: 20080804
  3. VIAGRA [Concomitant]
     Dosage: 50 MG, UNK
  4. UROXATRAL [Concomitant]
     Dosage: 10 MG, UNK
  5. PHENAZOPYRIDINE HCL TAB [Concomitant]
     Dosage: 200 MG, UNK
  6. LEVAQUIN [Concomitant]
     Dosage: 500 MG, UNK
  7. CIALIS [Concomitant]
     Dosage: 5 MG, UNK
  8. BOTOX [Concomitant]

REACTIONS (4)
  - BODY TEMPERATURE INCREASED [None]
  - DRUG INTOLERANCE [None]
  - FEELING OF BODY TEMPERATURE CHANGE [None]
  - NAUSEA [None]
